FAERS Safety Report 5088991-X (Version None)
Quarter: 2006Q3

REPORT INFORMATION
  Report Type: 
  Country: None (occurrence: None)
  Receive Date: 20060825
  Receipt Date: 20060816
  Transmission Date: 20061208
  Serious: Yes (Other)
  Sender: FDA-Public Use
  Company Number: AT-ROCHE-460074

PATIENT
  Age: 39 Year
  Sex: Male

DRUGS (3)
  1. PEG-INTERFERON A-2A (RO 25-8310) [Suspect]
     Route: 065
  2. RIBAVIRIN [Suspect]
     Route: 065
  3. AMANTADINE HCL [Suspect]
     Route: 065

REACTIONS (3)
  - DEAFNESS NEUROSENSORY [None]
  - TINNITUS [None]
  - VIRAL INFECTION [None]
